FAERS Safety Report 16910860 (Version 1)
Quarter: 2019Q4

REPORT INFORMATION
  Report Type: Spontaneous
  Country: US (occurrence: US)
  Receive Date: 20191012
  Receipt Date: 20191012
  Transmission Date: 20200122
  Serious: No
  Sender: FDA-Public Use
  Company Number: US-BION-008100

PATIENT

DRUGS (1)
  1. PROGESTERONE CAPSULE UNKNOWN [Suspect]
     Active Substance: PROGESTERONE
     Indication: PRODUCT USED FOR UNKNOWN INDICATION
     Dosage: STRENGTH: 100 MG

REACTIONS (3)
  - Poor quality product administered [Not Recovered/Not Resolved]
  - Dyspepsia [Unknown]
  - Product odour abnormal [Unknown]
